FAERS Safety Report 9450693 (Version 1)
Quarter: 2013Q3

REPORT INFORMATION
  Report Type: Report from Study
  Country: US (occurrence: US)
  Receive Date: 20130809
  Receipt Date: 20130809
  Transmission Date: 20140515
  Serious: Yes (Other)
  Sender: FDA-Public Use
  Company Number: US-ABBOTT-13P-163-1128814-00

PATIENT
  Age: 64 Year
  Sex: Female

DRUGS (14)
  1. HUMIRA [Suspect]
     Indication: RHEUMATOID ARTHRITIS
     Dates: start: 201001, end: 201009
  2. HUMIRA [Suspect]
     Dates: start: 201301, end: 201305
  3. HUMIRA [Suspect]
     Dates: start: 20130712
  4. BIOTIN [Concomitant]
     Indication: PRODUCT USED FOR UNKNOWN INDICATION
  5. FLAX SEED-OMEGA WITH KRILL OIL [Concomitant]
     Indication: PRODUCT USED FOR UNKNOWN INDICATION
  6. METFORMIN [Concomitant]
     Indication: PRODUCT USED FOR UNKNOWN INDICATION
  7. ASOFT [Concomitant]
     Indication: GLAUCOMA
     Dosage: EYE DROPS DAILY
  8. TIMILOL [Concomitant]
     Indication: GLAUCOMA
     Dosage: EYE DROPS DAILY
  9. LUMAGEN [Concomitant]
     Indication: GLAUCOMA
     Dosage: EYE DROPS DAILY
  10. VITAMIN E [Concomitant]
     Indication: PRODUCT USED FOR UNKNOWN INDICATION
  11. VIT D [Concomitant]
     Indication: PRODUCT USED FOR UNKNOWN INDICATION
  12. FOLIC ACID [Concomitant]
     Indication: PRODUCT USED FOR UNKNOWN INDICATION
  13. METHOTREXATE [Concomitant]
     Indication: PRODUCT USED FOR UNKNOWN INDICATION
  14. CHLORELLA [Concomitant]
     Indication: SUPPLEMENTATION THERAPY

REACTIONS (19)
  - Ovarian mass [Unknown]
  - Blood glucose fluctuation [Unknown]
  - Visual impairment [Unknown]
  - Alopecia [Unknown]
  - Palpitations [Unknown]
  - Angina pectoris [Unknown]
  - Blood glucose increased [Unknown]
  - Abasia [Unknown]
  - Arthralgia [Unknown]
  - Hormone level abnormal [Unknown]
  - Hot flush [Unknown]
  - Fatigue [Unknown]
  - Cough [Unknown]
  - Rash pruritic [Unknown]
  - Pruritus [Unknown]
  - Arthralgia [Unknown]
  - Pain [Unknown]
  - Ear pruritus [Unknown]
  - Neoplasm [Unknown]
